FAERS Safety Report 4717177-0 (Version None)
Quarter: 2005Q3

REPORT INFORMATION
  Report Type: 
  Country: None (occurrence: None)
  Receive Date: 20050715
  Receipt Date: 20050704
  Transmission Date: 20060218
  Serious: Yes (Hospitalization)
  Sender: FDA-Public Use
  Company Number: BRO-008780

PATIENT
  Age: 60 Year
  Sex: Female

DRUGS (1)
  1. IOPAMIDOL-300 [Suspect]
     Indication: COMPUTERISED TOMOGRAM
     Dosage: IV
     Route: 042
     Dates: start: 20050623, end: 20050623

REACTIONS (5)
  - CHEST PAIN [None]
  - HYPERSENSITIVITY [None]
  - INTERSTITIAL LUNG DISEASE [None]
  - PRURITUS [None]
  - RASH [None]
